FAERS Safety Report 23829991 (Version 1)
Quarter: 2024Q2

REPORT INFORMATION
  Report Type: Spontaneous
  Country: SK (occurrence: SK)
  Receive Date: 20240508
  Receipt Date: 20240508
  Transmission Date: 20240716
  Serious: Yes (Death)
  Sender: FDA-Public Use
  Company Number: SK-PFIZER INC-PV202400053230

PATIENT
  Sex: Female

DRUGS (6)
  1. LETROZOLE [Suspect]
     Active Substance: LETROZOLE
     Indication: Breast cancer female
     Dosage: UNK
     Route: 065
  2. FULVESTRANT [Suspect]
     Active Substance: FULVESTRANT
     Indication: Breast cancer female
     Dosage: UNK
     Route: 065
  3. GONADORELIN DIACETATE TETRAHYDRATE [Suspect]
     Active Substance: GONADORELIN DIACETATE TETRAHYDRATE
     Indication: Breast cancer female
     Dosage: UNK
     Route: 065
  4. PALBOCICLIB [Suspect]
     Active Substance: PALBOCICLIB
     Indication: Breast cancer female
     Dosage: UNK
     Route: 065
     Dates: start: 20211101, end: 202209
  5. DENOSUMAB [Suspect]
     Active Substance: DENOSUMAB
     Indication: Breast cancer female
     Dosage: UNK
     Route: 065
  6. CAPECITABINE [Concomitant]
     Active Substance: CAPECITABINE
     Indication: Breast cancer female
     Dosage: ADMINISTERED METRONOMICALLY
     Route: 065

REACTIONS (1)
  - Neoplasm progression [Fatal]

NARRATIVE: CASE EVENT DATE: 20221201
